FAERS Safety Report 5025379-1 (Version None)
Quarter: 2006Q2

REPORT INFORMATION
  Report Type: 
  Country: None (occurrence: None)
  Receive Date: 20060608
  Receipt Date: 20060424
  Transmission Date: 20061013
  Serious: Yes (Hospitalization)
  Sender: FDA-Public Use
  Company Number: 2006055914

PATIENT
  Sex: Male
  Weight: 68.0396 kg

DRUGS (6)
  1. VIAGRA [Suspect]
     Indication: ERECTILE DYSFUNCTION
     Dosage: 25 MG
  2. NORVASC [Suspect]
     Indication: HYPERTENSION
     Dosage: 2.5 MG (1 IN 1 D)
     Dates: end: 20060101
  3. BETAPACE [Suspect]
     Indication: ILL-DEFINED DISORDER
     Dates: end: 20060101
  4. WARFARIN (WARFARIN) [Concomitant]
  5. DIGOXIN [Concomitant]
  6. VITAMINS (VITAMINS) [Concomitant]

REACTIONS (7)
  - CONDITION AGGRAVATED [None]
  - CYANOPSIA [None]
  - DRUG INEFFECTIVE [None]
  - DYSPNOEA [None]
  - ERECTILE DYSFUNCTION [None]
  - FATIGUE [None]
  - HYPERTENSION [None]
